FAERS Safety Report 8136421-3 (Version None)
Quarter: 2012Q1

REPORT INFORMATION
  Report Type: 
  Country: None (occurrence: None)
  Receive Date: 20120103
  Receipt Date: 20110908
  Transmission Date: 20120608
  Serious: No
  Sender: FDA-Public Use
  Company Number: AE-2011-001108

PATIENT
  Age: 59 Year
  Sex: Male
  Weight: 97.5234 kg

DRUGS (3)
  1. RIBASPHERE [Concomitant]
  2. PEG-INTRON [Concomitant]
  3. INCIVEK [Suspect]
     Dosage: 2250 MG (750 MG, 3 IN 1 D), ORAL
     Route: 048
     Dates: start: 20110811

REACTIONS (7)
  - CHILLS [None]
  - MYALGIA [None]
  - ORAL HERPES [None]
  - RASH VESICULAR [None]
  - VOMITING [None]
  - DIZZINESS [None]
  - FATIGUE [None]
